FAERS Safety Report 8495362-2 (Version None)
Quarter: 2012Q3

REPORT INFORMATION
  Report Type: 
  Country: None (occurrence: None)
  Receive Date: 20120709
  Receipt Date: 20120627
  Transmission Date: 20120928
  Serious: Yes (Hospitalization)
  Sender: FDA-Public Use
  Company Number: JP-VERTEX PHARMACEUTICALS INC.-AE-2012-009750

PATIENT
  Age: 67 Year
  Sex: Female

DRUGS (7)
  1. MICARDIS [Concomitant]
     Route: 048
  2. PEGINTERFERON ALFA-2B [Concomitant]
     Route: 058
     Dates: start: 20120509
  3. SEFIROM [Concomitant]
     Dates: start: 20120611
  4. RIBAVIRIN [Concomitant]
     Route: 048
     Dates: start: 20120509, end: 20120601
  5. RIBAVIRIN [Concomitant]
     Route: 048
     Dates: start: 20120602
  6. TELAVIC (TELAPREVIR) [Suspect]
     Indication: HEPATITIS C
     Route: 048
     Dates: start: 20120509, end: 20120517
  7. TELAVIC (TELAPREVIR) [Suspect]
     Route: 048
     Dates: start: 20120518, end: 20120607

REACTIONS (3)
  - NAUSEA [None]
  - VOMITING [None]
  - DECREASED APPETITE [None]
